FAERS Safety Report 23884305 (Version 1)
Quarter: 2024Q2

REPORT INFORMATION
  Report Type: Spontaneous
  Country: US (occurrence: None)
  Receive Date: 20240521
  Receipt Date: 20240521
  Transmission Date: 20240715
  Serious: Yes (Other)
  Sender: FDA-Public Use
  Company Number: None

PATIENT
  Age: 14 Year
  Sex: Female
  Weight: 55.5 kg

DRUGS (1)
  1. ORENCIA [Suspect]
     Active Substance: ABATACEPT
     Indication: Systemic lupus erythematosus
     Dosage: 125 MG WEEKLY SUBCUTANEOUS
     Route: 058
     Dates: start: 20240511

REACTIONS (2)
  - Swelling of eyelid [None]
  - Pruritus [None]

NARRATIVE: CASE EVENT DATE: 20240511
